FAERS Safety Report 23102823 (Version 1)
Quarter: 2023Q4

REPORT INFORMATION
  Report Type: Spontaneous
  Country: US (occurrence: US)
  Receive Date: 20231025
  Receipt Date: 20231025
  Transmission Date: 20240109
  Serious: Yes (Hospitalization)
  Sender: FDA-Public Use
  Company Number: US-ORG100016242-2023000292

PATIENT
  Sex: Female

DRUGS (1)
  1. EXPAREL [Suspect]
     Active Substance: BUPIVACAINE
     Indication: Postoperative analgesia
     Route: 050

REACTIONS (2)
  - Pelvic abscess [Unknown]
  - Off label use [Unknown]
